FAERS Safety Report 4964297-1 (Version None)
Quarter: 2006Q1

REPORT INFORMATION
  Report Type: 
  Country: None (occurrence: None)
  Receive Date: 20060331
  Receipt Date: 20060321
  Transmission Date: 20060701
  Serious: Yes (Hospitalization)
  Sender: FDA-Public Use
  Company Number: 2006038881

PATIENT
  Age: 46 Year
  Sex: Male
  Weight: 102.0593 kg

DRUGS (9)
  1. SUDAFED NON-DRYING SINUS (PSEUDOEPHEDRINE, GUAIFENESIN) [Suspect]
     Indication: SINUS HEADACHE
     Dosage: 2 CAPSULES AS NEEDED ^FOR YEARS^, ORAL
     Route: 048
  2. IBUPROFEN [Suspect]
     Indication: SINUS DISORDER
  3. ENALAPRIL MALEATE [Concomitant]
  4. CENTRUM (MINERALS NOS, VITAMINS NOS) [Concomitant]
  5. THIAMINE HCL [Concomitant]
  6. FUROSEMIDE [Concomitant]
  7. SPIRONOLACTONE [Concomitant]
  8. FOLIC ACID [Concomitant]
  9. ATENOLOL [Concomitant]

REACTIONS (2)
  - DRUG SCREEN POSITIVE [None]
  - HEPATIC CIRRHOSIS [None]
